FAERS Safety Report 8648608 (Version 2)
Quarter: 2012Q4

REPORT INFORMATION
  Report Type: 
  Country: GB (occurrence: GB)
  Receive Date: 20120703
  Receipt Date: 20121119
  Transmission Date: 20130627
  Serious: Yes (Hospitalization, Disabling, Other)
  Sender: FDA-Public Use
  Company Number: CHPA2012GB013078

PATIENT
  Age: 84 Year
  Sex: Male

DRUGS (3)
  1. SCOPODERM TTS [Suspect]
     Indication: SALIVARY HYPERSECRETION
     Dosage: 1 DF, UNK
     Route: 062
     Dates: start: 20120609
  2. DRUG THERAPY NOS [Concomitant]
     Dosage: 50 mg + 200 mg one 4 times daily
  3. DRUG THERAPY NOS [Concomitant]
     Dosage: 0.5 DF, QD
     Route: 048

REACTIONS (26)
  - Activities of daily living impaired [Unknown]
  - Dysstasia [Unknown]
  - Urinary tract infection [Unknown]
  - Tremor [Unknown]
  - Coordination abnormal [Unknown]
  - Incoherent [Unknown]
  - Fall [Unknown]
  - Eye disorder [Unknown]
  - Agitation [Unknown]
  - Confusional state [Unknown]
  - Deep vein thrombosis [Unknown]
  - Hallucination [Unknown]
  - Unresponsive to stimuli [Unknown]
  - Urinary retention [Unknown]
  - Incontinence [Not Recovered/Not Resolved]
  - Balance disorder [Unknown]
  - Nightmare [Unknown]
  - Dyskinesia [Unknown]
  - Feeling abnormal [Unknown]
  - Off label use [Unknown]
  - Dysuria [Unknown]
  - Somnolence [Unknown]
  - Vision blurred [Unknown]
  - Dry mouth [Unknown]
  - Mydriasis [Unknown]
  - Restlessness [Unknown]
